FAERS Safety Report 15933562 (Version 1)
Quarter: 2019Q1

REPORT INFORMATION
  Report Type: Spontaneous
  Country: PT (occurrence: PT)
  Receive Date: 20190207
  Receipt Date: 20190207
  Transmission Date: 20190417
  Serious: Yes (Hospitalization)
  Sender: FDA-Public Use
  Company Number: PT-MYLANLABS-2019M1010821

PATIENT
  Age: 19 Year
  Sex: Male

DRUGS (8)
  1. MIDAZOLAM [Suspect]
     Active Substance: MIDAZOLAM HYDROCHLORIDE
     Indication: INDUCTION OF ANAESTHESIA
     Dosage: 1.5 MILLIGRAM
     Route: 042
  2. LORAZEPAM. [Suspect]
     Active Substance: LORAZEPAM
     Indication: ANAESTHETIC PREMEDICATION
     Dosage: 1 MILLIGRAM (1 MG P.O. ON THE EVE AND ON THE MORNING OF THE SURGICAL INTERVENTION)
     Route: 048
  3. DROPERIDOL. [Suspect]
     Active Substance: DROPERIDOL
     Indication: INDUCTION OF ANAESTHESIA
     Dosage: 0.6 MILLIGRAM
     Route: 042
  4. KETOROLAC [Suspect]
     Active Substance: KETOROLAC\KETOROLAC TROMETHAMINE
     Indication: PRODUCT USED FOR UNKNOWN INDICATION
     Dosage: 30 MILLIGRAM
     Route: 042
  5. TRAMADOL. [Suspect]
     Active Substance: TRAMADOL
     Indication: POSTOPERATIVE ANALGESIA
     Dosage: UNK
     Route: 042
  6. ALFENTANIL. [Suspect]
     Active Substance: ALFENTANIL
     Indication: INDUCTION OF ANAESTHESIA
     Dosage: 0.6 MILLIGRAM
     Route: 042
  7. ATRACURIUM [Suspect]
     Active Substance: ATRACURIUM
     Indication: INDUCTION OF ANAESTHESIA
     Dosage: 35 MILLIGRAM
     Route: 042
  8. PROPOFOL. [Suspect]
     Active Substance: PROPOFOL
     Indication: INDUCTION OF ANAESTHESIA
     Dosage: 200 MILLIGRAM
     Route: 042

REACTIONS (1)
  - Acute pulmonary oedema [Recovered/Resolved]
